FAERS Safety Report 7652224-8 (Version None)
Quarter: 2011Q3

REPORT INFORMATION
  Report Type: 
  Country: None (occurrence: None)
  Receive Date: 20110803
  Receipt Date: 20110725
  Transmission Date: 20111222
  Serious: Yes (Hospitalization, Other)
  Sender: FDA-Public Use
  Company Number: US-BAYER-2011-047130

PATIENT
  Age: 22 Year
  Sex: Female
  Weight: 127.89 kg

DRUGS (1)
  1. YAZ [Suspect]
     Indication: PRODUCT USED FOR UNKNOWN INDICATION
     Dosage: UNK
     Dates: start: 20080401, end: 20080528

REACTIONS (4)
  - CHOLELITHIASIS [None]
  - CHOLECYSTITIS ACUTE [None]
  - INJURY [None]
  - EMOTIONAL DISTRESS [None]
